FAERS Safety Report 14704044 (Version 1)
Quarter: 2018Q2

REPORT INFORMATION
  Report Type: Spontaneous
  Country: IT (occurrence: IT)
  Receive Date: 20180402
  Receipt Date: 20180402
  Transmission Date: 20180711
  Serious: Yes (Hospitalization)
  Sender: FDA-Public Use
  Company Number: IT-BAUSCH-BL-2018-008704

PATIENT

DRUGS (3)
  1. DEXAMETHASONE. [Suspect]
     Active Substance: DEXAMETHASONE
     Indication: PLASMA CELL MYELOMA
     Dosage: 20MG ON DAYS 1-2, 8-9, 15-16 AND 21-22 OF A 36 DAY CYCLE FOR NINE CYCLES
     Route: 048
  2. CYCLOPHOSPHAMIDE. [Suspect]
     Active Substance: CYCLOPHOSPHAMIDE
     Indication: PLASMA CELL MYELOMA
     Dosage: 300 MG/M2 ON DAYS 1, 8, 15 AND 22 OF A 36 DAY CYCLE FOR NINE CYCLES
     Route: 042
  3. BORTEZOMIB [Suspect]
     Active Substance: BORTEZOMIB
     Indication: PLASMA CELL MYELOMA
     Dosage: 1.3MG/M2 ON DAYS 1, 8, 15 AND 22 OF A 36 DAY CYCLE FOR NINE CYCLES
     Route: 050

REACTIONS (1)
  - Peritonitis [Unknown]
